FAERS Safety Report 5570687-9 (Version None)
Quarter: 2007Q4

REPORT INFORMATION
  Report Type: 
  Country: None (occurrence: None)
  Receive Date: 20071221
  Receipt Date: 20071219
  Transmission Date: 20080405
  Serious: Yes (Other)
  Sender: FDA-Public Use
  Company Number: CA-WYE-G00811807

PATIENT
  Sex: Female

DRUGS (1)
  1. EFFEXOR XR [Suspect]
     Indication: ANXIETY
     Route: 048
     Dates: start: 20060601, end: 20070601

REACTIONS (3)
  - CIRCADIAN RHYTHM SLEEP DISORDER [None]
  - DEPRESSION [None]
  - QUALITY OF LIFE DECREASED [None]
